FAERS Safety Report 8829600 (Version 1)
Quarter: 2012Q4

REPORT INFORMATION
  Report Type: Spontaneous
  Country: US (occurrence: None)
  Receive Date: 20121005
  Receipt Date: 20121005
  Transmission Date: 20130627
  Serious: Yes (Death)
  Sender: FDA-Public Use
  Company Number: None

PATIENT
  Age: 65 Year
  Sex: Female

DRUGS (9)
  1. REVLIMID [Suspect]
     Indication: MULTIPLE MYELOMA
     Dosage: x21d/28d
     Route: 048
     Dates: start: 201202, end: 201204
  2. FUROSEMIDE [Concomitant]
  3. CARVEDILOL [Concomitant]
  4. LOPERAMIDE [Concomitant]
  5. GABAPENTIN [Concomitant]
  6. IBUPROFEN [Concomitant]
  7. KCL [Concomitant]
  8. ASA [Concomitant]
  9. OMEPRAZOLE [Concomitant]

REACTIONS (8)
  - Asthenia [None]
  - Condition aggravated [None]
  - Hypophagia [None]
  - Hypercalcaemia [None]
  - Hypernatraemia [None]
  - Renal failure acute [None]
  - Failure to thrive [None]
  - General physical health deterioration [None]
